FAERS Safety Report 4724688-0 (Version None)
Quarter: 2005Q3

REPORT INFORMATION
  Report Type: 
  Country: None (occurrence: None)
  Receive Date: 20050720
  Receipt Date: 20050720
  Transmission Date: 20060218
  Serious: Yes (Hospitalization)
  Sender: FDA-Public Use
  Company Number: None

PATIENT
  Age: 72 Year
  Sex: Female
  Weight: 113 kg

DRUGS (3)
  1. ROCURONIUM [Suspect]
     Indication: PARALYSIS
     Dates: start: 20050712, end: 20050712
  2. CLINDAMYCIN [Suspect]
     Indication: PREOPERATIVE CARE
     Dates: start: 20050712, end: 20050712
  3. CLINDAMYCIN [Suspect]
     Indication: PROPHYLAXIS
     Dates: start: 20050712, end: 20050712

REACTIONS (2)
  - POST PROCEDURAL COMPLICATION [None]
  - RESPIRATORY DISORDER [None]
